FAERS Safety Report 8352077-9 (Version None)
Quarter: 2012Q2

REPORT INFORMATION
  Report Type: 
  Country: None (occurrence: None)
  Receive Date: 20120511
  Receipt Date: 20120503
  Transmission Date: 20120825
  Serious: Yes (Other)
  Sender: FDA-Public Use
  Company Number: US-BAYER-2012-040458

PATIENT
  Age: 25 Year
  Sex: Female
  Weight: 58.957 kg

DRUGS (6)
  1. VICODIN [Concomitant]
  2. MOTRIN [Concomitant]
     Dosage: 200MG, 2 TABS, PRN
  3. SENSORCAINE [Concomitant]
     Dosage: 1/2% 5 CC+#8217; INJECTED RIGHT KNEE
     Dates: start: 20090812
  4. PANTOPRAZOLE SODIUM [Concomitant]
  5. HYDROCODONE BITARTRATE AND ACETAMINOPHEN [Concomitant]
  6. YAZ [Suspect]
     Dosage: UNK
     Dates: start: 20020101, end: 20090801

REACTIONS (3)
  - DEEP VEIN THROMBOSIS [None]
  - INJURY [None]
  - PAIN [None]
